FAERS Safety Report 13867128 (Version 1)
Quarter: 2017Q3

REPORT INFORMATION
  Report Type: Spontaneous
  Country: US (occurrence: US)
  Receive Date: 20170814
  Receipt Date: 20170814
  Transmission Date: 20171127
  Serious: No
  Sender: FDA-Public Use
  Company Number: US-TAKEDA-2017TUS016641

PATIENT
  Sex: Male
  Weight: 81.63 kg

DRUGS (7)
  1. NIACIN-TIME [Concomitant]
     Indication: BLOOD TRIGLYCERIDES INCREASED
     Dosage: 1000 MG, QD
     Route: 048
  2. ROZEREM [Suspect]
     Active Substance: RAMELTEON
     Indication: SLEEP DISORDER
     Dosage: UNK, QD
     Route: 048
     Dates: start: 20170531, end: 20170602
  3. METFORMIN [Concomitant]
     Active Substance: METFORMIN HYDROCHLORIDE
     Indication: TYPE 2 DIABETES MELLITUS
     Dosage: 500 MG, UNK
     Route: 048
  4. ROZEREM [Suspect]
     Active Substance: RAMELTEON
     Dosage: UNK, QD
     Route: 048
     Dates: start: 20170605, end: 20170605
  5. POLYETHYLENE GLYCOL 3350. [Concomitant]
     Active Substance: POLYETHYLENE GLYCOL 3350
     Indication: CONSTIPATION
     Dosage: 17 MG, QD
     Route: 048
  6. ATORVASTATIN [Concomitant]
     Active Substance: ATORVASTATIN
     Indication: BLOOD CHOLESTEROL INCREASED
     Dosage: 10 MG, QD
     Route: 048
  7. TAMSULOSIN [Concomitant]
     Active Substance: TAMSULOSIN
     Dosage: UNK
     Route: 048

REACTIONS (2)
  - Drug ineffective [Recovered/Resolved]
  - Thinking abnormal [Recovered/Resolved]
